FAERS Safety Report 5488987-X (Version None)
Quarter: 2007Q4

REPORT INFORMATION
  Report Type: 
  Country: None (occurrence: None)
  Receive Date: 20071016
  Receipt Date: 20071004
  Transmission Date: 20080405
  Serious: Yes (Hospitalization)
  Sender: FDA-Public Use
  Company Number: 2007-161904-NL

PATIENT
  Age: 33 Year
  Sex: Female

DRUGS (1)
  1. NUVARING [Suspect]
     Dosage: DF
     Dates: start: 20070516, end: 20070518

REACTIONS (24)
  - ABDOMINAL PAIN [None]
  - ANURIA [None]
  - BLOOD PRESSURE DECREASED [None]
  - CARPAL TUNNEL SYNDROME [None]
  - DEHYDRATION [None]
  - DIARRHOEA [None]
  - DISSEMINATED INTRAVASCULAR COAGULATION [None]
  - FLATULENCE [None]
  - GASTROENTERITIS [None]
  - HYPOALBUMINAEMIA [None]
  - HYPOKALAEMIA [None]
  - HYPOTONIA [None]
  - ILL-DEFINED DISORDER [None]
  - NORMOCHROMIC NORMOCYTIC ANAEMIA [None]
  - OEDEMA [None]
  - OEDEMA PERIPHERAL [None]
  - PARAESTHESIA [None]
  - RENAL FAILURE ACUTE [None]
  - SEPTIC SHOCK [None]
  - TOXIC SHOCK SYNDROME STAPHYLOCOCCAL [None]
  - TRANSAMINASES INCREASED [None]
  - VAGINAL DISCHARGE [None]
  - VOMITING [None]
  - WEIGHT INCREASED [None]
